FAERS Safety Report 4788262-2 (Version None)
Quarter: 2005Q4

REPORT INFORMATION
  Report Type: 
  Country: None (occurrence: None)
  Receive Date: 20051003
  Receipt Date: 20050922
  Transmission Date: 20060501
  Serious: Yes (Hospitalization)
  Sender: FDA-Public Use
  Company Number: 2005-132823-NL

PATIENT
  Age: 76 Year
  Sex: Male

DRUGS (8)
  1. DANAPAROID SODIUM [Suspect]
     Indication: THROMBOCYTOPENIA
     Dosage: SEE IMAGE
     Dates: start: 20050816, end: 20050821
  2. DANAPAROID SODIUM [Suspect]
     Indication: THROMBOCYTOPENIA
     Dosage: SEE IMAGE
     Dates: start: 20050816
  3. TICARCILLIN DISODIUM [Concomitant]
  4. CIPROFLOXACIN [Concomitant]
  5. OMEPRAZOLE [Concomitant]
  6. INSULIN [Concomitant]
  7. VITAMIN A [Concomitant]
  8. RIFAMPICIN [Concomitant]

REACTIONS (4)
  - ANAEMIA [None]
  - CARDIAC TAMPONADE [None]
  - COAGULATION TEST ABNORMAL [None]
  - PERICARDIAL HAEMORRHAGE [None]
